FAERS Safety Report 5900221-2 (Version None)
Quarter: 2008Q3

REPORT INFORMATION
  Report Type: 
  Country: None (occurrence: None)
  Receive Date: 20080926
  Receipt Date: 20080924
  Transmission Date: 20090109
  Serious: Yes (Other)
  Sender: FDA-Public Use
  Company Number: US-JNJFOC-20080904478

PATIENT
  Age: 61 Year
  Sex: Female

DRUGS (10)
  1. SPORANOX [Suspect]
     Indication: ORAL CANDIDIASIS
     Route: 048
  2. SPORANOX [Suspect]
     Indication: FUNGAL INFECTION
     Route: 048
  3. STEROID INJECTIONS [Concomitant]
     Indication: BACK PAIN
     Route: 008
  4. THYROID MEDICATION [Concomitant]
     Route: 065
  5. PREVACID [Concomitant]
     Indication: ANTACID THERAPY
     Route: 065
  6. FENTANYL TRANSDERMAL SYSTEM [Concomitant]
     Indication: PAIN
     Dosage: 25-50MCG/HR
     Route: 065
  7. ATENOLOL [Concomitant]
     Indication: ARRHYTHMIA
     Route: 065
  8. CLEOCIN [Concomitant]
     Indication: ABDOMINAL INFECTION
     Dosage: AS NEEDED FOR SYMPTOMS OF ABDOMINAL INFECTION
     Route: 065
  9. VANCOMYCIN HCL [Concomitant]
     Indication: ABDOMINAL INFECTION
     Dosage: AS NEEDED FOR SYMPTOMS OF ABDOMINAL INFECTIONS
     Route: 065
  10. OXYCODONE HCL [Concomitant]
     Indication: PAIN
     Route: 065

REACTIONS (6)
  - ARRHYTHMIA [None]
  - ARTHRALGIA [None]
  - CALCINOSIS [None]
  - CARDIOMEGALY [None]
  - CHRONIC OBSTRUCTIVE PULMONARY DISEASE [None]
  - DIARRHOEA [None]
